FAERS Safety Report 25710207 (Version 1)
Quarter: 2025Q3

REPORT INFORMATION
  Report Type: Spontaneous
  Country: US (occurrence: None)
  Receive Date: 20250820
  Receipt Date: 20250820
  Transmission Date: 20251021
  Serious: Yes (Other)
  Sender: FDA-CTU
  Company Number: None

PATIENT
  Age: 72 Year
  Sex: Male

DRUGS (2)
  1. VENCLEXTA [Suspect]
     Active Substance: VENETOCLAX
     Indication: Chronic lymphocytic leukaemia
     Dosage: 400 MG DAILY ORAL
     Route: 048
  2. MOUNJARO [Suspect]
     Active Substance: TIRZEPATIDE

REACTIONS (8)
  - Atrial fibrillation [None]
  - Arthralgia [None]
  - Diarrhoea [None]
  - Nausea [None]
  - Fatigue [None]
  - Constipation [None]
  - Weight increased [None]
  - Skin cancer [None]
